FAERS Safety Report 13189028 (Version 1)
Quarter: 2017Q1

REPORT INFORMATION
  Report Type: Spontaneous
  Country: US (occurrence: US)
  Receive Date: 20170206
  Receipt Date: 20170206
  Transmission Date: 20170428
  Serious: No
  Sender: FDA-Public Use
  Company Number: US-GLAXOSMITHKLINE-US2017015528

PATIENT
  Sex: Female

DRUGS (1)
  1. VENTOLIN HFA [Suspect]
     Active Substance: ALBUTEROL SULFATE
     Indication: PRODUCT USED FOR UNKNOWN INDICATION
     Dosage: UNK

REACTIONS (5)
  - Underdose [Recovered/Resolved]
  - Wrong technique in product usage process [Recovered/Resolved]
  - Product cleaning inadequate [Recovered/Resolved]
  - Incorrect product storage [Recovered/Resolved]
  - Device use error [Recovered/Resolved]
